FAERS Safety Report 17252223 (Version 1)
Quarter: 2020Q1

REPORT INFORMATION
  Report Type: Spontaneous
  Country: US (occurrence: US)
  Receive Date: 20200109
  Receipt Date: 20200109
  Transmission Date: 20200409
  Serious: No
  Sender: FDA-Public Use
  Company Number: US-PFIZER INC-2017281528

PATIENT
  Age: 34 Year
  Sex: Female
  Weight: 74.84 kg

DRUGS (5)
  1. GENOTROPIN MQ [Suspect]
     Active Substance: SOMATROPIN
     Dosage: 0.6 MG, UNK (SEVEN NIGHTS PER WEEK)
     Route: 058
  2. GENOTROPIN [Concomitant]
     Active Substance: SOMATROPIN
     Dosage: UNK
  3. GENOTROPIN MQ [Suspect]
     Active Substance: SOMATROPIN
     Dosage: 1 MG, 1X/DAY (1 MG INJECTION NIGHTLY)
  4. GENOTROPIN MQ [Suspect]
     Active Substance: SOMATROPIN
     Indication: HYPOPITUITARISM
     Dosage: 0.8 MG, 1X/DAY
     Dates: start: 201606
  5. GENOTROPIN MQ [Suspect]
     Active Substance: SOMATROPIN
     Indication: GROWTH HORMONE DEFICIENCY
     Dosage: (0.4 MG, 1X/DAY

REACTIONS (2)
  - Fatigue [Unknown]
  - Intentional product misuse [Unknown]
